FAERS Safety Report 17872322 (Version 2)
Quarter: 2020Q2

REPORT INFORMATION
  Report Type: Report from Study
  Country: CO (occurrence: CO)
  Receive Date: 20200608
  Receipt Date: 20200610
  Transmission Date: 20200714
  Serious: Yes (Hospitalization)
  Sender: FDA-Public Use
  Company Number: NVSC2020CO133993

PATIENT
  Age: 67 Year
  Sex: Male
  Weight: 130 kg

DRUGS (4)
  1. METFORMIN HYDROCHLORIDE. [Suspect]
     Active Substance: METFORMIN HYDROCHLORIDE
     Indication: PRODUCT USED FOR UNKNOWN INDICATION
     Dosage: UNK
     Route: 065
  2. LOSARTAN POTASSIUM. [Suspect]
     Active Substance: LOSARTAN POTASSIUM
     Indication: PRODUCT USED FOR UNKNOWN INDICATION
     Dosage: UNK
     Route: 065
  3. COSENTYX [Suspect]
     Active Substance: SECUKINUMAB
     Indication: PSORIASIS
     Dosage: 300 MG, QMO
     Route: 058
     Dates: start: 20171012
  4. ATORVASTATIN CALCIUM. [Suspect]
     Active Substance: ATORVASTATIN CALCIUM
     Indication: PRODUCT USED FOR UNKNOWN INDICATION
     Dosage: UNK
     Route: 065

REACTIONS (6)
  - Vomiting [Recovering/Resolving]
  - Rash [Not Recovered/Not Resolved]
  - Weight increased [Not Recovered/Not Resolved]
  - Diarrhoea [Recovering/Resolving]
  - Skin lesion [Not Recovered/Not Resolved]
  - Renal failure [Unknown]

NARRATIVE: CASE EVENT DATE: 20200101
